FAERS Safety Report 8716527 (Version 6)
Quarter: 2012Q4

REPORT INFORMATION
  Report Type: 
  Country: US (occurrence: US)
  Receive Date: 20120810
  Receipt Date: 20121207
  Transmission Date: 20130627
  Serious: Yes (Hospitalization, Other)
  Sender: FDA-Public Use
  Company Number: US-BIOGENIDEC-2012BI028313

PATIENT
  Age: 42 Year
  Sex: Female

DRUGS (16)
  1. TYSABRI [Suspect]
     Indication: MULTIPLE SCLEROSIS
     Route: 042
     Dates: start: 20080721, end: 20100618
  2. BACLOFEN [Concomitant]
     Route: 048
  3. ZANAFLEX [Concomitant]
     Route: 048
  4. XANAX [Concomitant]
     Route: 048
  5. KEPPRA [Concomitant]
     Route: 048
  6. TOPAMAX [Concomitant]
  7. TOPAMAX [Concomitant]
  8. GABAPENTIN [Concomitant]
     Route: 048
  9. CYMBALTA [Concomitant]
  10. AMBIEN [Concomitant]
     Route: 048
  11. CORTEF [Concomitant]
     Route: 048
  12. PROTONIX [Concomitant]
  13. ORTHO-EST [Concomitant]
  14. LEVOTHYROXINE [Concomitant]
  15. VITAMIN D [Concomitant]
  16. FLOMAX [Concomitant]

REACTIONS (6)
  - Progressive multifocal leukoencephalopathy [Unknown]
  - Metabolic encephalopathy [Recovered/Resolved]
  - Herpes virus infection [Unknown]
  - Thrombocytopenia [Unknown]
  - Immune reconstitution inflammatory syndrome [Unknown]
  - Convulsion [Recovered/Resolved]
